FAERS Safety Report 9871412 (Version 1)
Quarter: 2014Q1

REPORT INFORMATION
  Report Type: Spontaneous
  Country: US (occurrence: US)
  Receive Date: 20140205
  Receipt Date: 20140205
  Transmission Date: 20141002
  Serious: Yes (Death, Other)
  Sender: FDA-Public Use
  Company Number: PHEH2014US002491

PATIENT
  Age: 73 Year
  Sex: Male

DRUGS (1)
  1. DIOVAN [Suspect]
     Dosage: 320 MG, UNK

REACTIONS (3)
  - Death [Fatal]
  - Renal failure [Unknown]
  - Cardiac disorder [Unknown]
